FAERS Safety Report 14017219 (Version 1)
Quarter: 2017Q3

REPORT INFORMATION
  Report Type: Spontaneous
  Country: DE (occurrence: DE)
  Receive Date: 20170927
  Receipt Date: 20170927
  Transmission Date: 20171128
  Serious: Yes (Other)
  Sender: FDA-Public Use
  Company Number: DE-IPSEN BIOSCIENCE, INC.-MER-2017-000333

PATIENT

DRUGS (5)
  1. OXALIPLATIN. [Suspect]
     Active Substance: OXALIPLATIN
     Indication: PRODUCT USED FOR UNKNOWN INDICATION
     Dosage: 172.55 MG, UNK, REFIMEN #1
     Route: 065
     Dates: start: 20161201, end: 20170419
  2. FLUOROURACIL. [Suspect]
     Active Substance: FLUOROURACIL
     Indication: PRODUCT USED FOR UNKNOWN INDICATION
     Dosage: 812 MG, UNK, REGIMEN #1
     Route: 065
     Dates: start: 20161201, end: 20170419
  3. ONIVYDE [Suspect]
     Active Substance: IRINOTECAN HYDROCHLORIDE
     Indication: PRODUCT USED FOR UNKNOWN INDICATION
     Dosage: 365.4 MG, UNK, REGIMEN #1
     Route: 065
     Dates: start: 20161201, end: 20170419
  4. CALCIUM FOLINATE [Suspect]
     Active Substance: LEUCOVORIN CALCIUM
     Indication: PRODUCT USED FOR UNKNOWN INDICATION
     Dosage: 812 MG, UNK, REGIMEN #1
     Route: 065
     Dates: start: 20161201, end: 20170419
  5. FU [Suspect]
     Active Substance: FLUOROURACIL
     Indication: PRODUCT USED FOR UNKNOWN INDICATION
     Dosage: 4872 MG, UNK, REGIMEN #1
     Route: 065
     Dates: start: 20161201, end: 20170419

REACTIONS (1)
  - Peripheral sensory neuropathy [Unknown]

NARRATIVE: CASE EVENT DATE: 20170110
